FAERS Safety Report 10086255 (Version 4)
Quarter: 2014Q2

REPORT INFORMATION
  Report Type: Spontaneous
  Country: AU (occurrence: AU)
  Receive Date: 20140418
  Receipt Date: 20140606
  Transmission Date: 20141212
  Serious: Yes (Hospitalization)
  Sender: FDA-Public Use
  Company Number: AU-PFIZER INC-2014080749

PATIENT
  Age: 53 Year
  Sex: Female

DRUGS (1)
  1. SUTENT [Suspect]
     Indication: OVARIAN CLEAR CELL CARCINOMA
     Dosage: 50 MG, DAILY, FOUR WEEKS FOLLOWED BY TWO WEEKS BREAK
     Route: 048
     Dates: start: 20140321

REACTIONS (4)
  - Pain [Unknown]
  - Disease progression [Unknown]
  - Ovarian clear cell carcinoma [Unknown]
  - Off label use [Unknown]
